FAERS Safety Report 5843409-1 (Version None)
Quarter: 2008Q3

REPORT INFORMATION
  Report Type: 
  Country: None (occurrence: None)
  Receive Date: 20080813
  Receipt Date: 20080807
  Transmission Date: 20090109
  Serious: Yes (Hospitalization)
  Sender: FDA-Public Use
  Company Number: B0528439A

PATIENT
  Age: 73 Year
  Sex: Female

DRUGS (4)
  1. VALTREX [Suspect]
     Indication: HERPES ZOSTER
     Dosage: 1000MG THREE TIMES PER DAY
     Route: 048
     Dates: start: 20080705, end: 20080705
  2. GLIMICRON [Concomitant]
     Indication: DIABETES MELLITUS
     Dosage: 80MG PER DAY
     Route: 048
  3. BASEN [Concomitant]
     Indication: DIABETES MELLITUS
     Dosage: .9MG PER DAY
     Route: 048
  4. AMLODIPINE BESYLATE [Concomitant]
     Indication: HYPERTENSION
     Dosage: 5MG PER DAY
     Route: 048

REACTIONS (5)
  - DIARRHOEA [None]
  - MALAISE [None]
  - NAUSEA [None]
  - RENAL FAILURE ACUTE [None]
  - VOMITING [None]
